FAERS Safety Report 14327311 (Version 2)
Quarter: 2018Q1

REPORT INFORMATION
  Report Type: Spontaneous
  Country: US (occurrence: US)
  Receive Date: 20171227
  Receipt Date: 20180117
  Transmission Date: 20180509
  Serious: No
  Sender: FDA-Public Use
  Company Number: US-PFIZER INC-2017542217

PATIENT
  Age: 45 Year
  Sex: Female

DRUGS (2)
  1. GENOTROPIN [Suspect]
     Active Substance: SOMATROPIN
     Dosage: 0.8 MG, DAILY
  2. GENOTROPIN [Suspect]
     Active Substance: SOMATROPIN
     Dosage: 0.6 MG, DAILY

REACTIONS (7)
  - Peripheral swelling [Recovering/Resolving]
  - Drug dose omission [Unknown]
  - Intentional product use issue [Unknown]
  - Fluid retention [Recovering/Resolving]
  - Oedema peripheral [Unknown]
  - Somnolence [Unknown]
  - Weight decreased [Unknown]
